FAERS Safety Report 4273892-7 (Version None)
Quarter: 2004Q1

REPORT INFORMATION
  Report Type: 
  Country: None (occurrence: None)
  Receive Date: 20040115
  Receipt Date: 20031229
  Transmission Date: 20041129
  Serious: Yes (Hospitalization, Other)
  Sender: FDA-Public Use
  Company Number: US_981113025

PATIENT
  Age: 31 Year
  Sex: Female
  Weight: 55 kg

DRUGS (14)
  1. NPH ILETIN I (BEEF-PORK) [Suspect]
     Indication: DIABETES MELLITUS
     Dosage: 44/U/DAY
     Dates: start: 19520101, end: 20000101
  2. ILETIN [Suspect]
     Indication: DIABETES MELLITUS
     Dates: start: 19520101, end: 20000101
  3. HUMULIN L [Suspect]
     Indication: DIABETES MELLITUS
     Dosage: 35 U/1 IN THE MORNING
     Dates: start: 20000101
  4. HUMULIN U [Suspect]
     Indication: DIABETES MELLITUS
     Dosage: 46 U/IN THE MORNING
     Dates: start: 20000101
  5. HUMULIN N [Suspect]
     Indication: DIABETES MELLITUS
     Dates: start: 19960101, end: 19960101
  6. ILETIN [Suspect]
     Indication: DIABETES MELLITUS
  7. HUMULIN R [Suspect]
     Indication: DIABETES MELLITUS
     Dosage: 6 U/IN THE MORNING
     Dates: start: 20000101
  8. HUMULIN 70/30 [Suspect]
     Indication: DIABETES MELLITUS
     Dosage: 12 U/1 IN THE MORNING
     Dates: start: 20000101
  9. GLUCAGON [Suspect]
  10. MULTI-VITAMIN [Concomitant]
  11. ALLERGY SHOT [Concomitant]
  12. CHROMIUM PICOLINATE [Concomitant]
  13. TETRACYCLINE [Concomitant]
  14. VITAMIN B6 [Concomitant]

REACTIONS (13)
  - BLOOD GLUCOSE INCREASED [None]
  - CYSTITIS [None]
  - DRUG INEFFECTIVE [None]
  - HYPOGLYCAEMIA [None]
  - INJECTION SITE PAIN [None]
  - INJURY [None]
  - LOSS OF CONSCIOUSNESS [None]
  - MALAISE [None]
  - MEDICATION ERROR [None]
  - PRURITUS [None]
  - SHOCK HYPOGLYCAEMIC [None]
  - URTICARIA [None]
  - WEIGHT DECREASED [None]
